FAERS Safety Report 19895509 (Version 1)
Quarter: 2021Q3

REPORT INFORMATION
  Report Type: Spontaneous
  Country: US (occurrence: US)
  Receive Date: 20210929
  Receipt Date: 20210929
  Transmission Date: 20211014
  Serious: No
  Sender: FDA-Public Use
  Company Number: None

PATIENT
  Age: 68 Year
  Sex: Male
  Weight: 83 kg

DRUGS (2)
  1. DABIGATRAN (DABIGATRAN ETEXILATE 150MG CAP, ORAL, UD) [Suspect]
     Active Substance: DABIGATRAN ETEXILATE
     Indication: DEEP VEIN THROMBOSIS
  2. DABIGATRAN (DABIGATRAN ETEXILATE 150MG CAP, ORAL, UD) [Suspect]
     Active Substance: DABIGATRAN ETEXILATE
     Indication: DEEP VEIN THROMBOSIS
     Dates: start: 20210514, end: 20210614

REACTIONS (3)
  - Deep vein thrombosis [None]
  - Thrombosis [None]
  - Therapy change [None]

NARRATIVE: CASE EVENT DATE: 20210614
